FAERS Safety Report 5983435-5 (Version None)
Quarter: 2008Q4

REPORT INFORMATION
  Report Type: 
  Country: None (occurrence: None)
  Receive Date: 20081208
  Receipt Date: 20081201
  Transmission Date: 20090506
  Serious: Yes (Other)
  Sender: FDA-Public Use
  Company Number: US-BAYER-200838264NA

PATIENT
  Age: 53 Year
  Sex: Female
  Weight: 91 kg

DRUGS (1)
  1. ULTRAVIST 300 [Suspect]
     Indication: COMPUTERISED TOMOGRAM THORAX
     Dosage: TOTAL DAILY DOSE: 100 ML
     Dates: start: 20081111, end: 20081111

REACTIONS (5)
  - ASTHMA [None]
  - CHEST PAIN [None]
  - CONTRAST MEDIA ALLERGY [None]
  - NASAL DISCOMFORT [None]
  - PRURITUS GENERALISED [None]
